FAERS Safety Report 19714493 (Version 2)
Quarter: 2021Q4

REPORT INFORMATION
  Report Type: Report from Study
  Country: CA (occurrence: CA)
  Receive Date: 20210818
  Receipt Date: 20211210
  Transmission Date: 20220303
  Serious: Yes (Hospitalization, Other)
  Sender: FDA-Public Use
  Company Number: CA-ABBVIE-21K-028-4042656-00

PATIENT
  Age: 49 Year
  Sex: Female
  Weight: 59.020 kg

DRUGS (8)
  1. HUMIRA [Suspect]
     Active Substance: ADALIMUMAB
     Indication: Psoriasis
     Route: 058
     Dates: start: 20171109, end: 2021
  2. LEFLUNOMIDE [Suspect]
     Active Substance: LEFLUNOMIDE
     Indication: Product used for unknown indication
     Route: 065
     Dates: end: 202108
  3. IRON [Suspect]
     Active Substance: IRON
     Indication: Anaemia
     Route: 065
     Dates: start: 2021
  4. CANDESARTAN [Suspect]
     Active Substance: CANDESARTAN
     Indication: Hypertension
     Route: 065
     Dates: end: 202108
  5. ROSUVASTATIN [Concomitant]
     Active Substance: ROSUVASTATIN
     Indication: Product used for unknown indication
     Dosage: MONDAY, WEDNESDAY, FRIDAY
     Route: 048
  6. TINZAPARIN [Concomitant]
     Active Substance: TINZAPARIN
     Indication: Product used for unknown indication
     Dates: end: 202108
  7. ALBUTEROL [Concomitant]
     Active Substance: ALBUTEROL
     Indication: Product used for unknown indication
     Dosage: 1-2 PUFFS
  8. LEVOTHYROXINE [Concomitant]
     Active Substance: LEVOTHYROXINE
     Indication: Blood thyroid stimulating hormone
     Dates: end: 202108

REACTIONS (47)
  - Liver disorder [Unknown]
  - Acute kidney injury [Recovering/Resolving]
  - Melaena [Unknown]
  - Diarrhoea [Unknown]
  - Fatigue [Unknown]
  - Hepatic cirrhosis [Unknown]
  - Upper gastrointestinal haemorrhage [Unknown]
  - Dyspnoea [Unknown]
  - Haematemesis [Unknown]
  - Gastric ulcer [Unknown]
  - Hepatic vein thrombosis [Unknown]
  - Portal hypertension [Unknown]
  - Hepatic encephalopathy [Unknown]
  - Nonalcoholic fatty liver disease [Unknown]
  - Hypothyroidism [Unknown]
  - Dyslipidaemia [Unknown]
  - Type 2 diabetes mellitus [Unknown]
  - Psoriatic arthropathy [Unknown]
  - Gastric ulcer [Recovered/Resolved]
  - Hepatic fibrosis [Unknown]
  - Splenomegaly [Unknown]
  - Heavy menstrual bleeding [Unknown]
  - Asthma [Unknown]
  - Thrombocytopenia [Unknown]
  - Delirium [Unknown]
  - Haemoglobin decreased [Recovering/Resolving]
  - Duodenitis [Unknown]
  - Gastritis [Unknown]
  - Iron deficiency [Unknown]
  - International normalised ratio increased [Unknown]
  - Human chorionic gonadotropin negative [Unknown]
  - Hydronephrosis [Unknown]
  - Confusional state [Unknown]
  - Memory impairment [Unknown]
  - Normocytic anaemia [Not Recovered/Not Resolved]
  - Anaemia [Not Recovered/Not Resolved]
  - Aphasia [Unknown]
  - Pyuria [Unknown]
  - Urinary tract infection [Recovered/Resolved]
  - Blood albumin decreased [Unknown]
  - Ammonia increased [Unknown]
  - Electrolyte imbalance [Unknown]
  - Pain in extremity [Unknown]
  - Adverse drug reaction [Unknown]
  - Hepatic mass [Unknown]
  - Hepatic hypertrophy [Unknown]
  - Ascites [Unknown]

NARRATIVE: CASE EVENT DATE: 20200601
